FAERS Safety Report 4821518-3 (Version None)
Quarter: 2005Q4

REPORT INFORMATION
  Report Type: 
  Country: None (occurrence: None)
  Receive Date: 20051103
  Receipt Date: 20051020
  Transmission Date: 20060501
  Serious: Yes (Hospitalization)
  Sender: FDA-Public Use
  Company Number: US016245

PATIENT
  Age: 59 Year
  Sex: Male
  Weight: 84.0062 kg

DRUGS (3)
  1. TRISENOX [Suspect]
     Indication: TONSIL CANCER
     Dosage: 21 MG Q72HR INTRAVENOUS DRIP
     Route: 041
     Dates: start: 20050920
  2. MORPHINE [Concomitant]
  3. NYSTATIN [Concomitant]

REACTIONS (2)
  - DYSPHAGIA [None]
  - MUCOSAL INFLAMMATION [None]
